FAERS Safety Report 5116394-8 (Version None)
Quarter: 2006Q3

REPORT INFORMATION
  Report Type: 
  Country: None (occurrence: None)
  Receive Date: 20060928
  Receipt Date: 20060918
  Transmission Date: 20061208
  Serious: Yes (Death, Hospitalization, Other)
  Sender: FDA-Public Use
  Company Number: US-JNJFOC-20060904610

PATIENT
  Age: 62 Year
  Sex: Female

DRUGS (1)
  1. REMICADE [Suspect]
     Indication: CROHN'S DISEASE
     Dosage: ^RECEIVING FOR YEARS^
     Route: 042

REACTIONS (3)
  - DEAFNESS [None]
  - DYSPHAGIA [None]
  - PNEUMONIA ASPIRATION [None]
